FAERS Safety Report 18139430 (Version 1)
Quarter: 2020Q3

REPORT INFORMATION
  Report Type: Spontaneous
  Country: US (occurrence: US)
  Receive Date: 20200812
  Receipt Date: 20200812
  Transmission Date: 20201103
  Serious: Yes (Life-Threatening, Other)
  Sender: FDA-Public Use
  Company Number: US-AMERICAN REGENT INC-2020001540

PATIENT
  Age: 52 Year
  Sex: Female

DRUGS (2)
  1. INSULIN DEGLUDEC [Concomitant]
     Active Substance: INSULIN DEGLUDEC
     Indication: TYPE 1 DIABETES MELLITUS
     Dosage: UNK
     Route: 065
  2. INJECTAFER [Suspect]
     Active Substance: FERRIC CARBOXYMALTOSE
     Indication: BLOOD IRON DECREASED
     Dosage: 750 MILLIGRAM IN 250 ML
     Route: 042
     Dates: start: 20200617, end: 20200617

REACTIONS (2)
  - Hypophosphataemia [Recovered/Resolved]
  - Serum ferritin increased [Unknown]

NARRATIVE: CASE EVENT DATE: 20200623
